FAERS Safety Report 8506906-6 (Version None)
Quarter: 2012Q3

REPORT INFORMATION
  Report Type: 
  Country: None (occurrence: None)
  Receive Date: 20120712
  Receipt Date: 20120709
  Transmission Date: 20120928
  Serious: Yes (Death, Hospitalization)
  Sender: FDA-Public Use
  Company Number: US-PURDUE-USA_2009_0038103

PATIENT
  Sex: Female
  Weight: 63.492 kg

DRUGS (6)
  1. OXYCONTIN [Suspect]
     Indication: BACK DISORDER
     Dosage: 80 MG, Q12H
  2. MORPHINE SULFATE [Suspect]
     Indication: PAIN
     Dosage: 40 MG, UNK
  3. OXYCODONE HCL [Suspect]
     Indication: BACK PAIN
     Dosage: 5 MG, BID
     Dates: start: 20020101
  4. OXYCONTIN [Suspect]
     Indication: BACK PAIN
     Dosage: 40 MG, BID
     Dates: start: 20020101
  5. PLAVIX [Concomitant]
     Dosage: UNK
  6. ADVAIR DISKUS 100/50 [Concomitant]

REACTIONS (6)
  - AORTIC ANEURYSM RUPTURE [None]
  - LUNG DISORDER [None]
  - OVERDOSE [None]
  - PNEUMONIA [None]
  - MYOCARDIAL INFARCTION [None]
  - ARTERIOSCLEROSIS CORONARY ARTERY [None]
